FAERS Safety Report 7106284 (Version 2)
Quarter: 2012Q4

REPORT INFORMATION
  Report Type: Report from Study
  Country: KR (occurrence: KR)
  Receive Date: 20090904
  Receipt Date: 20120906
  Transmission Date: 20130627
  Serious: Yes (Hospitalization)
  Sender: FDA-Public Use
  Company Number: PHHO2009KR10586

PATIENT
  Age: 40 Year
  Sex: Male
  Weight: 77.2 kg

DRUGS (3)
  1. CYTARABINE [Suspect]
     Indication: ACUTE LYMPHOCYTIC LEUKAEMIA
     Dosage: 2000 mg/m2, UNK
     Route: 042
     Dates: start: 20090805, end: 20090808
  2. ETOPOSIDE [Suspect]
     Indication: ACUTE LYMPHOCYTIC LEUKAEMIA
     Dosage: 150 mg/m2, UNK
     Route: 042
     Dates: start: 20090805, end: 20090808
  3. AMN107 [Suspect]
     Indication: ACUTE LYMPHOCYTIC LEUKAEMIA
     Dosage: 800 mg, QD
     Route: 048
     Dates: start: 20090521, end: 20090817

REACTIONS (2)
  - Febrile neutropenia [Recovered/Resolved]
  - Diarrhoea [Recovered/Resolved]
